FAERS Safety Report 24462982 (Version 2)
Quarter: 2024Q4

REPORT INFORMATION
  Report Type: Spontaneous
  Country: RO (occurrence: RO)
  Receive Date: 20241018
  Receipt Date: 20241031
  Transmission Date: 20250114
  Serious: Yes (Other)
  Sender: NOVARTIS
  Company Number: RO-002147023-NVSC2024RO200120

PATIENT
  Age: 75 Year
  Sex: Male

DRUGS (6)
  1. SCEMBLIX [Suspect]
     Active Substance: ASCIMINIB HYDROCHLORIDE
     Indication: Chronic myeloid leukaemia
     Dosage: 40 MG, BID
     Route: 065
     Dates: start: 202403, end: 202407
  2. SCEMBLIX [Suspect]
     Active Substance: ASCIMINIB HYDROCHLORIDE
     Dosage: 20 MG, BID
     Route: 065
     Dates: start: 202407, end: 202409
  3. NILOTINIB [Suspect]
     Active Substance: NILOTINIB
     Indication: Chronic myeloid leukaemia
     Dosage: UNK
     Route: 065
     Dates: start: 201804, end: 201807
  4. BESREMI [Concomitant]
     Active Substance: ROPEGINTERFERON ALFA-2B-NJFT
     Indication: Product used for unknown indication
     Dosage: UNK
     Route: 065
     Dates: start: 202405
  5. BESREMI [Concomitant]
     Active Substance: ROPEGINTERFERON ALFA-2B-NJFT
     Dosage: 200 UG, Q2W
     Route: 065
     Dates: end: 202409
  6. HYDROXYUREA [Concomitant]
     Active Substance: HYDROXYUREA
     Indication: Product used for unknown indication
     Dosage: UNK
     Route: 065

REACTIONS (12)
  - Hepatotoxicity [Recovered/Resolved]
  - Cataract [Not Recovered/Not Resolved]
  - Hepatic cytolysis [Recovered/Resolved]
  - Cholestasis [Recovered/Resolved]
  - Ocular discomfort [Unknown]
  - Conjunctivitis [Recovered/Resolved]
  - Pseudophakia [Unknown]
  - Drug resistance mutation [Unknown]
  - Nausea [Unknown]
  - Neutrophilia [Unknown]
  - Monocytosis [Unknown]
  - Basophilia [Unknown]

NARRATIVE: CASE EVENT DATE: 20240401
